FAERS Safety Report 18196705 (Version 1)
Quarter: 2020Q3

REPORT INFORMATION
  Report Type: Spontaneous
  Country: US (occurrence: US)
  Receive Date: 20200826
  Receipt Date: 20200826
  Transmission Date: 20201103
  Serious: No
  Sender: FDA-Public Use
  Company Number: US-BAUSCH-BL-2020-022749

PATIENT
  Age: 35 Year
  Sex: Female
  Weight: 43.13 kg

DRUGS (1)
  1. LUMIFY [Suspect]
     Active Substance: BRIMONIDINE TARTRATE
     Indication: OCULAR HYPERAEMIA
     Dosage: 1 DROP IN EACH EYE AS NEEDED, STARTED COUPLE OF WEEKS AGO FROM THE DATE OF REPORT
     Route: 047
     Dates: start: 202007, end: 202008

REACTIONS (3)
  - Periorbital swelling [Unknown]
  - Foreign body sensation in eyes [Unknown]
  - Eye pain [Recovered/Resolved]

NARRATIVE: CASE EVENT DATE: 202008
